FAERS Safety Report 12247736 (Version 1)
Quarter: 2016Q2

REPORT INFORMATION
  Report Type: Spontaneous
  Country: US (occurrence: US)
  Receive Date: 20160408
  Receipt Date: 20160408
  Transmission Date: 20160815
  Serious: No
  Sender: FDA-Public Use
  Company Number: US-JNJFOC-20160302377

PATIENT
  Sex: Female

DRUGS (11)
  1. NEORAL [Concomitant]
     Active Substance: CYCLOSPORINE
     Dosage: 2 CAPSULE EVERY MORNING, 3 CAPSULES EVENING, TWICE DAILY
     Route: 065
  2. RAPAMUNE [Concomitant]
     Active Substance: SIROLIMUS
     Dosage: 1 TABLET ON SAT, SUN, TUES, WED,??FRI AND 2 TABLETS ON MON AND THURS
     Route: 065
  3. SULFAMETHOXAZOLE AND TRIMETHOPRIM [Concomitant]
     Active Substance: SULFAMETHOXAZOLE\TRIMETHOPRIM
     Dosage: 800-160MG TABLET, 1 TABLET DAILY
     Route: 048
  4. TYLENOL WITH CODEINE [Suspect]
     Active Substance: ACETAMINOPHEN\CODEINE PHOSPHATE
     Indication: PRODUCT USED FOR UNKNOWN INDICATION
     Route: 065
  5. NEXIUM [Concomitant]
     Active Substance: ESOMEPRAZOLE MAGNESIUM
     Dosage: 1 CAPSULE EVERY MORNING BEFORE BREAKFAST
     Route: 048
  6. WARFARIN [Concomitant]
     Active Substance: WARFARIN
     Indication: DEEP VEIN THROMBOSIS
     Dosage: 1 DAILY
     Route: 048
  7. PNEUMOCOCCAL 13 VALENT VACCINE [Concomitant]
     Active Substance: PNEUMOCOCCAL 13-VALENT CONJUGATE VACCINE
     Dosage: ONCE INTRAMUSCULAR
     Route: 030
  8. LASIX [Concomitant]
     Active Substance: FUROSEMIDE
     Dosage: 1 TABLET DAILY WHEN NECESSARY
     Route: 048
  9. ASPIRIN. [Concomitant]
     Active Substance: ASPIRIN
     Dosage: 1 TABLET DAILY
     Route: 048
  10. LIPITOR [Concomitant]
     Active Substance: ATORVASTATIN CALCIUM
     Dosage: 1 TABLET AT BEDTIME
     Route: 065
  11. METOPROLOL. [Concomitant]
     Active Substance: METOPROLOL
     Dosage: 1 TABLET DAILY
     Route: 048

REACTIONS (1)
  - Urticaria [Unknown]
